FAERS Safety Report 23669065 (Version 1)
Quarter: 2024Q1

REPORT INFORMATION
  Report Type: Spontaneous
  Country: CN (occurrence: CN)
  Receive Date: 20240325
  Receipt Date: 20240325
  Transmission Date: 20240410
  Serious: Yes (Life-Threatening, Hospitalization, Other)
  Sender: FDA-Public Use
  Company Number: None

PATIENT
  Age: 77 Year
  Sex: Female
  Weight: 50 kg

DRUGS (1)
  1. CLOPIDOGREL BISULFATE [Suspect]
     Active Substance: CLOPIDOGREL BISULFATE
     Indication: Cerebral infarction
     Dosage: 75 MG, QD
     Route: 048
     Dates: start: 20240315, end: 20240317

REACTIONS (7)
  - Dizziness [Recovering/Resolving]
  - Gastrointestinal haemorrhage [Recovering/Resolving]
  - Haematochezia [Recovered/Resolved]
  - Haematemesis [Recovered/Resolved]
  - Faeces discoloured [Recovered/Resolved]
  - Musculoskeletal chest pain [Recovering/Resolving]
  - Blood pressure fluctuation [Recovering/Resolving]

NARRATIVE: CASE EVENT DATE: 20240317
